FAERS Safety Report 22614307 (Version 1)
Quarter: 2023Q2

REPORT INFORMATION
  Report Type: Spontaneous
  Country: US (occurrence: US)
  Receive Date: 20230619
  Receipt Date: 20230619
  Transmission Date: 20230722
  Serious: No
  Sender: FDA-Public Use
  Company Number: US-BRISTOL-MYERS SQUIBB COMPANY-2023-085598

PATIENT
  Age: 74 Year
  Sex: Male
  Weight: 83.91 kg

DRUGS (5)
  1. REVLIMID [Suspect]
     Active Substance: LENALIDOMIDE
     Indication: Plasma cell myeloma
     Route: 048
     Dates: start: 20230607, end: 20230610
  2. VITAMINS [Concomitant]
     Active Substance: VITAMINS
     Indication: Product used for unknown indication
     Route: 048
     Dates: start: 20230524
  3. COQ10 [ASCORBIC ACID;BETACAROTENE;CUPRIC OXIDE;MANGANESE SULFATE;SELEN [Concomitant]
     Indication: Product used for unknown indication
     Route: 048
     Dates: start: 20230524
  4. DOCONEXENT\ICOSAPENT [Concomitant]
     Active Substance: DOCONEXENT\ICOSAPENT
     Indication: Product used for unknown indication
     Route: 048
     Dates: start: 20230524
  5. DEXAMETHASONE [Concomitant]
     Active Substance: DEXAMETHASONE
     Indication: Product used for unknown indication
     Route: 048
     Dates: start: 20230525

REACTIONS (3)
  - Dyspnoea [Recovering/Resolving]
  - Dizziness [Recovering/Resolving]
  - Epistaxis [Recovering/Resolving]

NARRATIVE: CASE EVENT DATE: 20230608
